FAERS Safety Report 12933782 (Version 3)
Quarter: 2017Q1

REPORT INFORMATION
  Report Type: Report from Study
  Country: CA (occurrence: CA)
  Receive Date: 20161111
  Receipt Date: 20170124
  Transmission Date: 20170428
  Serious: Yes (Death, Life-Threatening, Hospitalization)
  Sender: FDA-Public Use
  Company Number: CA-HLSUS-2016-CA-000624

PATIENT
  Age: 60 Year
  Sex: Male
  Weight: 52 kg

DRUGS (4)
  1. CLOZARIL [Suspect]
     Active Substance: CLOZAPINE
     Indication: SCHIZOPHRENIA
     Dosage: 100MG AM, 75MG NOON + 300MG HS
     Route: 048
     Dates: start: 20090413, end: 20161103
  2. EPIVAL [Concomitant]
     Active Substance: DIVALPROEX SODIUM
     Indication: SCHIZOPHRENIA
     Dosage: 250MGAM,500MG LUNCH TIME,500DI
  3. SEROQUEL [Concomitant]
     Active Substance: QUETIAPINE FUMARATE
     Dosage: 200MG DINERTIME
  4. HALDOL [Concomitant]
     Active Substance: HALOPERIDOL
     Indication: OBSESSIVE-COMPULSIVE DISORDER
     Dosage: 2MG TID + 5MG BEDTIME

REACTIONS (5)
  - Vomiting [Unknown]
  - Neutropenia [Recovering/Resolving]
  - Drooling [Unknown]
  - Terminal state [Fatal]
  - Ileus [Fatal]

NARRATIVE: CASE EVENT DATE: 2016
